FAERS Safety Report 4664934-5 (Version None)
Quarter: 2005Q2

REPORT INFORMATION
  Report Type: 
  Country: None (occurrence: None)
  Receive Date: 20050518
  Receipt Date: 20050208
  Transmission Date: 20051028
  Serious: Yes (Other)
  Sender: FDA-Public Use
  Company Number: 2005UW02233

PATIENT
  Age: 46 Year
  Sex: Male
  Weight: 83.9 kg

DRUGS (6)
  1. SEROQUEL [Interacting]
     Indication: SLEEP DISORDER
     Route: 048
  2. PARNATE [Interacting]
  3. PAXIL [Suspect]
  4. KLONOPIN [Concomitant]
     Indication: ANXIETY DISORDER
     Route: 048
  5. KLONOPIN [Concomitant]
     Indication: CONVULSION
     Route: 048
  6. LEXAPRO [Concomitant]
     Indication: DEPRESSION
     Route: 048

REACTIONS (13)
  - AMNESIA [None]
  - ANXIETY [None]
  - ASTHENIA [None]
  - BRAIN DAMAGE [None]
  - COORDINATION ABNORMAL [None]
  - DEPRESSED LEVEL OF CONSCIOUSNESS [None]
  - DEPRESSION [None]
  - DISTURBANCE IN ATTENTION [None]
  - DRUG DEPENDENCE [None]
  - DRUG INTERACTION [None]
  - HEPATIC ENZYME ABNORMAL [None]
  - INCREASED APPETITE [None]
  - SUICIDE ATTEMPT [None]
